FAERS Safety Report 8422155-4 (Version None)
Quarter: 2012Q2

REPORT INFORMATION
  Report Type: 
  Country: None (occurrence: None)
  Receive Date: 20120608
  Receipt Date: 20120606
  Transmission Date: 20120825
  Serious: Yes (Other)
  Sender: FDA-Public Use
  Company Number: CN-ROCHE-1075985

PATIENT
  Sex: Female
  Weight: 72 kg

DRUGS (3)
  1. HERCEPTIN [Suspect]
     Indication: BREAST CANCER
  2. EPIRUBICIN [Concomitant]
     Indication: BREAST CANCER
  3. PACLITAXEL [Concomitant]
     Indication: BREAST CANCER

REACTIONS (1)
  - EPILEPSY [None]
